FAERS Safety Report 13148541 (Version 2)
Quarter: 2017Q1

REPORT INFORMATION
  Report Type: Spontaneous
  Country: US (occurrence: US)
  Receive Date: 20170125
  Receipt Date: 20170216
  Transmission Date: 20170428
  Serious: No
  Sender: FDA-Public Use
  Company Number: US-HORIZON-PEN-0029-2017

PATIENT
  Sex: Female

DRUGS (1)
  1. PENNSAID [Suspect]
     Active Substance: DICLOFENAC SODIUM
     Indication: PRODUCT USED FOR UNKNOWN INDICATION
     Dosage: 1 SAMPLE PACKED 1 TO 2 TIMES DAILY
     Route: 061

REACTIONS (2)
  - Off label use [Recovered/Resolved]
  - International normalised ratio increased [Unknown]
